FAERS Safety Report 8112578 (Version 3)
Quarter: 2013Q1

REPORT INFORMATION
  Report Type: Report from Study
  Country: CH (occurrence: CH)
  Receive Date: 20110830
  Receipt Date: 20130219
  Transmission Date: 20140127
  Serious: Yes (Hospitalization)
  Sender: FDA-Public Use
  Company Number: CH-JNJFOC-20110808490

PATIENT
  Age: 77 Year
  Sex: Male
  Weight: 80 kg

DRUGS (13)
  1. ABIRATERONE [Suspect]
     Route: 048
  2. ABIRATERONE [Suspect]
     Indication: PROSTATE CANCER METASTATIC
     Route: 048
     Dates: start: 20110719
  3. ATORVASTATIN [Concomitant]
     Route: 048
  4. NOVALGIN [Concomitant]
     Route: 048
  5. POTASSIUM CHLORIDE [Concomitant]
     Route: 048
  6. CALCIUM [Concomitant]
     Route: 048
  7. MOVICOL [Concomitant]
     Route: 048
  8. COVERSUM [Concomitant]
     Route: 048
  9. ALDACTONE [Concomitant]
     Route: 065
  10. FRAGMINE [Concomitant]
     Route: 065
  11. NORVASC [Concomitant]
     Route: 048
  12. MARCOUMAR [Concomitant]
     Route: 048
  13. PREDNISONE [Concomitant]
     Indication: PROSTATE CANCER METASTATIC
     Route: 048

REACTIONS (1)
  - Cerebral ischaemia [Recovered/Resolved with Sequelae]
